FAERS Safety Report 8439135-5 (Version None)
Quarter: 2012Q2

REPORT INFORMATION
  Report Type: 
  Country: None (occurrence: None)
  Receive Date: 20120615
  Receipt Date: 20120606
  Transmission Date: 20120825
  Serious: Yes (Other)
  Sender: FDA-Public Use
  Company Number: MX-PFIZER INC-2012142090

PATIENT
  Age: 69 Year
  Sex: Female

DRUGS (6)
  1. AKINETON [Concomitant]
     Dosage: 2 MG, 1X/DAY
     Route: 048
     Dates: start: 20101201
  2. CORDARONE [Suspect]
     Dosage: 200 MG, DAILY
     Route: 048
     Dates: start: 20101201, end: 20120604
  3. CRESTOR [Concomitant]
     Dosage: 1 DF, 1X/DAY
     Route: 048
     Dates: start: 20101201
  4. VITAMIN E [Concomitant]
     Dosage: 1 DF, 1X/DAY
     Route: 048
     Dates: start: 20101201
  5. CORDARONE [Suspect]
     Dosage: 0.5 DF, DAILY
     Route: 048
     Dates: start: 20120605
  6. CLOPIDOGREL [Suspect]
     Indication: PRODUCT USED FOR UNKNOWN INDICATION
     Dosage: CLOPIDOGREL 75MG/ ACETYL SALICYLIC ACID 100MG, EVERY 24HOURS
     Route: 048
     Dates: start: 20101201

REACTIONS (2)
  - WEIGHT INCREASED [None]
  - MEDICATION ERROR [None]
